FAERS Safety Report 15081773 (Version 3)
Quarter: 2018Q4

REPORT INFORMATION
  Report Type: Spontaneous
  Country: US (occurrence: US)
  Receive Date: 20180628
  Receipt Date: 20181114
  Transmission Date: 20190204
  Serious: No
  Sender: FDA-Public Use
  Company Number: US-PFIZER INC-2018260103

PATIENT
  Age: 60 Year
  Sex: Female
  Weight: 73 kg

DRUGS (7)
  1. FASLODEX [Concomitant]
     Active Substance: FULVESTRANT
     Dosage: UNK
     Dates: start: 201803
  2. XGEVA [Concomitant]
     Active Substance: DENOSUMAB
     Dosage: UNK
  3. DICYCLOMINE [Concomitant]
     Active Substance: DICYCLOMINE HYDROCHLORIDE
     Dosage: 20 MG, AS NEEDED
     Route: 048
  4. WELLBUTRIN [Concomitant]
     Active Substance: BUPROPION HYDROCHLORIDE
     Dosage: 300 MG, 1X/DAY
     Route: 048
  5. LINZESS [Concomitant]
     Active Substance: LINACLOTIDE
     Dosage: 290 UG, 1X/DAY
     Route: 048
  6. IBRANCE [Suspect]
     Active Substance: PALBOCICLIB
     Indication: BREAST CANCER METASTATIC
     Dosage: 1 DF, CYCLIC (ONCE A DAY FOR THREE WEEKS AND ONE WEEK OFF)
     Route: 048
     Dates: start: 2018, end: 20180604
  7. MELOXICAM. [Concomitant]
     Active Substance: MELOXICAM
     Indication: GROIN PAIN
     Dosage: 15 MG, 1X/DAY
     Route: 048

REACTIONS (4)
  - Malaise [Unknown]
  - Neoplasm progression [Unknown]
  - Product dose omission [Unknown]
  - White blood cell count decreased [Unknown]

NARRATIVE: CASE EVENT DATE: 2018
